FAERS Safety Report 8824069 (Version 1)
Quarter: 2012Q4

REPORT INFORMATION
  Report Type: 
  Country: US (occurrence: US)
  Receive Date: 20121003
  Receipt Date: 20121003
  Transmission Date: 20130627
  Serious: No
  Sender: FDA-Public Use
  Company Number: US-009507513-1209USA011110

PATIENT
  Age: 26 Year
  Sex: Female

DRUGS (1)
  1. NUVARING [Suspect]
     Dosage: 1 DF, qm
     Route: 067
     Dates: start: 201009

REACTIONS (2)
  - Menstruation delayed [Unknown]
  - Incorrect drug administration duration [Unknown]
